FAERS Safety Report 5463571-2 (Version None)
Quarter: 2007Q3

REPORT INFORMATION
  Report Type: 
  Country: None (occurrence: None)
  Receive Date: 20070919
  Receipt Date: 20070905
  Transmission Date: 20080115
  Serious: Yes (Other)
  Sender: FDA-Public Use
  Company Number: 2007S1000337

PATIENT
  Age: 51 Year
  Sex: Female

DRUGS (2)
  1. CUBICIN [Suspect]
     Indication: STAPHYLOCOCCAL BACTERAEMIA
     Dosage: 6 MG/KG; Q24H; IV
     Route: 042
  2. VANCOMYCIN [Concomitant]

REACTIONS (8)
  - ANTIMICROBIAL SUSCEPTIBILITY TEST RESISTANT [None]
  - CARDIAC VALVE VEGETATION [None]
  - DRUG RESISTANCE [None]
  - ENDOCARDITIS STAPHYLOCOCCAL [None]
  - MITRAL VALVE DISEASE [None]
  - MULTI-ORGAN FAILURE [None]
  - NO THERAPEUTIC RESPONSE [None]
  - TREATMENT FAILURE [None]
